FAERS Safety Report 4912299-3 (Version None)
Quarter: 2006Q1

REPORT INFORMATION
  Report Type: 
  Country: None (occurrence: None)
  Receive Date: 20060213
  Receipt Date: 20060208
  Transmission Date: 20060701
  Serious: Yes (Hospitalization)
  Sender: FDA-Public Use
  Company Number: FRP06000202

PATIENT
  Age: 65 Year
  Sex: Female
  Weight: 50 kg

DRUGS (7)
  1. ACTONEL [Suspect]
     Dosage: SEE IMAGE, ORAL
     Route: 048
     Dates: start: 20010601, end: 20030715
  2. ACTONEL [Suspect]
     Dosage: SEE IMAGE, ORAL
     Route: 048
     Dates: start: 20030716, end: 20051212
  3. ARAVA [Suspect]
     Dosage: SEE IMAGE, ORAL
     Route: 048
     Dates: start: 20020719, end: 20041122
  4. ARAVA [Suspect]
     Dosage: SEE IMAGE, ORAL
     Route: 048
     Dates: start: 20050301, end: 20050412
  5. ENBREL [Suspect]
     Dosage: 50 MG, 1/WEEK, SUBCUTANEOUS
     Route: 058
     Dates: start: 20040224, end: 20050907
  6. PREDNISONE [Concomitant]
  7. SULFASALAZINE [Concomitant]

REACTIONS (4)
  - ALOPECIA [None]
  - EYE PAIN [None]
  - SCLERITIS [None]
  - VISUAL ACUITY REDUCED [None]
